FAERS Safety Report 5673026-8 (Version None)
Quarter: 2008Q1

REPORT INFORMATION
  Report Type: 
  Country: None (occurrence: None)
  Receive Date: 20080319
  Receipt Date: 20080129
  Transmission Date: 20080703
  Serious: No
  Sender: FDA-Public Use
  Company Number: US-ASTRAZENECA-2008UW02040

PATIENT
  Sex: Female

DRUGS (1)
  1. SYMBICORT [Suspect]
     Dosage: 80/4.5 UG ONE INHALATION TWICE DAILY
     Route: 055
     Dates: start: 20080124, end: 20080126

REACTIONS (2)
  - BALANCE DISORDER [None]
  - DIZZINESS [None]
